FAERS Safety Report 19121132 (Version 1)
Quarter: 2021Q2

REPORT INFORMATION
  Report Type: Spontaneous
  Country: CN (occurrence: CN)
  Receive Date: 20210412
  Receipt Date: 20210412
  Transmission Date: 20210717
  Serious: Yes (Death, Hospitalization, Other)
  Sender: FDA-Public Use
  Company Number: CN-ASTELLAS-2021US013193

PATIENT
  Sex: Male

DRUGS (1)
  1. MYCAMINE [Suspect]
     Active Substance: MICAFUNGIN SODIUM
     Indication: INFECTION
     Dosage: 3 BOTTLES, TWICE DAILY
     Route: 041
     Dates: start: 20210405, end: 20210406

REACTIONS (2)
  - Brain oedema [Fatal]
  - Fungal infection [Unknown]

NARRATIVE: CASE EVENT DATE: 20210406
